FAERS Safety Report 5737183-7 (Version None)
Quarter: 2008Q2

REPORT INFORMATION
  Report Type: 
  Country: None (occurrence: None)
  Receive Date: 20080512
  Receipt Date: 20080512
  Transmission Date: 20081010
  Serious: Yes (Death)
  Sender: FDA-Public Use
  Company Number: None

PATIENT
  Age: 90 Year
  Sex: Male
  Weight: 76.2043 kg

DRUGS (1)
  1. DIGITEK  0.125 MG.  MYLAN BERT [Suspect]
     Indication: ATRIAL FIBRILLATION
     Dosage: 0.125  ONE DAILY  PO
     Route: 048
     Dates: start: 20050101, end: 20080425

REACTIONS (2)
  - CARDIAC DISORDER [None]
  - PHARMACEUTICAL PRODUCT COMPLAINT [None]
